APPROVED DRUG PRODUCT: FENTANYL-12
Active Ingredient: FENTANYL
Strength: 12.5MCG/HR
Dosage Form/Route: FILM, EXTENDED RELEASE;TRANSDERMAL
Application: A077449 | Product #005 | TE Code: AB
Applicant: DIFGEN PHARMACEUTICALS LLC
Approved: Sep 11, 2015 | RLD: No | RS: No | Type: RX